FAERS Safety Report 9674960 (Version 1)
Quarter: 2013Q4

REPORT INFORMATION
  Report Type: Spontaneous
  Country: US (occurrence: None)
  Receive Date: 20131106
  Receipt Date: 20131106
  Transmission Date: 20140711
  Serious: Yes (Life-Threatening, Hospitalization)
  Sender: FDA-Public Use
  Company Number: None

PATIENT
  Age: 67 Year
  Sex: Male
  Weight: 127 kg

DRUGS (14)
  1. LISINOPRIL/HCTZ [Suspect]
     Indication: HYPERTENSION
     Route: 048
     Dates: start: 20130501, end: 20131102
  2. TIOTROPIUM [Suspect]
     Route: 055
  3. FLUTICASONE/SALMETEROL [Suspect]
     Route: 055
  4. BISOPROLOL [Suspect]
     Route: 048
  5. SIMVASTATIN [Suspect]
     Route: 048
  6. ALBUTEROL [Suspect]
     Dosage: 2 PUFFS, PRN
  7. OMEPRAZOLE [Suspect]
     Route: 048
  8. METFORMIN [Suspect]
     Route: 048
  9. MONTELUKAST [Suspect]
     Route: 048
  10. PREDNISONE [Suspect]
     Route: 048
  11. ROFLUMILAST [Suspect]
     Route: 048
  12. FUROSEMIDE [Suspect]
     Route: 048
  13. ALBUTEROL [Suspect]
  14. NEBULIZER [Suspect]
     Dosage: PRN

REACTIONS (3)
  - Angioedema [None]
  - Dyspnoea [None]
  - Local swelling [None]
